FAERS Safety Report 20160712 (Version 1)
Quarter: 2021Q4

REPORT INFORMATION
  Report Type: Spontaneous
  Country: US (occurrence: US)
  Receive Date: 20211208
  Receipt Date: 20211208
  Transmission Date: 20220303
  Serious: Yes (Hospitalization)
  Sender: FDA-Public Use
  Company Number: US-TERSERA THERAPEUTICS LLC-2021TRS005351

PATIENT

DRUGS (25)
  1. PRIALT [Suspect]
     Active Substance: ZICONOTIDE ACETATE
     Indication: Pain
     Dosage: 1 MCG, QD (0.25 MICROGRAMS OF PRIALT Q.2 HOURS MAX 4 DOSES PER 24 HOURS)
     Route: 037
     Dates: start: 20191104
  2. PRIALT [Suspect]
     Active Substance: ZICONOTIDE ACETATE
     Indication: Back pain
     Dosage: 1.0 MCG, QD (0.3 MM PER DOSES Q.2 HOURS MAX 5 DOSES PER DAY)
     Route: 037
     Dates: start: 20191107
  3. PRIALT [Suspect]
     Active Substance: ZICONOTIDE ACETATE
     Indication: Rheumatoid arthritis
     Dosage: 2 MCG, QD (0.1 MCG OF PRIALT Q 3 HR MAX 4 DOSES PER 24 HR)
     Route: 037
     Dates: start: 20191114
  4. PRIALT [Suspect]
     Active Substance: ZICONOTIDE ACETATE
     Dosage: 3 MCG, QD (0.25 MG OF PRIALT Q.2 HOURS MAX 6 DOSES PER 24 HR)
     Route: 037
     Dates: start: 20191204
  5. PRIALT [Suspect]
     Active Substance: ZICONOTIDE ACETATE
     Dosage: 3750 MCG, QD (0.1 MCG PER DOSE WITH A MAX OF 2 PER DAY WITH A LOCK OUT OF 2 HOURS)
     Route: 037
     Dates: start: 20191211
  6. PRIALT [Suspect]
     Active Substance: ZICONOTIDE ACETATE
     Dosage: 1.8 MCG, QD (0.100 MCG, MAX 6 DOSES PER 24 HOURS WITH LOCKOUT Q 2 HOURS)
     Route: 037
     Dates: start: 20200210, end: 20200224
  7. BUPIVACAINE [Suspect]
     Active Substance: BUPIVACAINE
     Indication: Pain
     Dosage: 500 MCG, QD
     Route: 037
     Dates: start: 20191107
  8. BUPIVACAINE [Suspect]
     Active Substance: BUPIVACAINE
     Dosage: 5000 MCG, QD
     Route: 037
     Dates: start: 20191114
  9. BUPIVACAINE [Suspect]
     Active Substance: BUPIVACAINE
     Dosage: 85632 MCG, QD
     Route: 037
     Dates: start: 20191204
  10. BUPIVACAINE [Suspect]
     Active Substance: BUPIVACAINE
     Dosage: 5632 MCG, QD (0.1 MCG PER DOSE WITH A MAX OF 2 PER DAY WITH A LOCK OUT OF 2 HOURS)
     Route: 037
     Dates: start: 20191211
  11. BUPIVACAINE [Suspect]
     Active Substance: BUPIVACAINE
     Dosage: 3518 MCG, QD
     Route: 037
     Dates: start: 20210210
  12. BUPIVACAINE [Suspect]
     Active Substance: BUPIVACAINE
     Dosage: 750 MCG, QD
     Route: 037
     Dates: start: 20200224
  13. BUPIVACAINE [Suspect]
     Active Substance: BUPIVACAINE
     Dosage: 1700 MCG, QD (CONCENTRATION: 30000 MCG/ML)
     Route: 037
     Dates: start: 20200924
  14. MORPHINE [Suspect]
     Active Substance: MORPHINE
     Indication: Pain
     Dosage: 100 MCG, QD (CONCENTRATION: 30000 MCG/ML)
     Route: 037
  15. MORPHINE [Suspect]
     Active Substance: MORPHINE
     Dosage: UNK  (CONCENTRATION: 4000 MCG/ML)
     Route: 037
  16. MORPHINE [Suspect]
     Active Substance: MORPHINE
     Dosage: 297 MCG, QD (CONCENTRATION: 5000 MCG/ML)
     Route: 037
  17. FOSAMAX [Concomitant]
     Active Substance: ALENDRONATE SODIUM
     Indication: Product used for unknown indication
     Dosage: 70 MG, WEEKLY
     Route: 048
  18. KLOR-CON M20 [Concomitant]
     Active Substance: POTASSIUM CHLORIDE
     Indication: Product used for unknown indication
     Dosage: 1 DOSAGE FORM, BID
     Route: 048
  19. LASIX [Concomitant]
     Active Substance: FUROSEMIDE
     Indication: Product used for unknown indication
     Dosage: 1 DOSAGE FORM, QD
     Route: 048
  20. BUDESONIDE [Concomitant]
     Active Substance: BUDESONIDE
     Indication: Product used for unknown indication
     Dosage: 3 MG, QD
     Route: 048
  21. NORCO [Concomitant]
     Active Substance: ACETAMINOPHEN\HYDROCODONE BITARTRATE
     Indication: Intervertebral disc degeneration
     Dosage: 325 MG-7.5 MG (1 TABLET EVERY 8 HRS)
     Route: 048
  22. KEFLEX [Concomitant]
     Active Substance: CEPHALEXIN
     Indication: Product used for unknown indication
     Dosage: 500 MG, EVERY 12 HOURS
     Route: 048
  23. DIAZEPAM [Concomitant]
     Active Substance: DIAZEPAM
     Indication: Product used for unknown indication
     Dosage: 5 MG, TID
     Route: 048
  24. CYCLOBENZAPRINE [Concomitant]
     Active Substance: CYCLOBENZAPRINE
     Indication: Product used for unknown indication
     Dosage: 5 MG, AT BEDTIME AS NEEDED
     Route: 048
  25. IBUPROFEN [Concomitant]
     Active Substance: IBUPROFEN
     Indication: Pain
     Dosage: 800 MG, TID AS NEEDED
     Route: 048

REACTIONS (12)
  - Toxicity to various agents [Unknown]
  - Tinnitus [Recovered/Resolved]
  - Mental disorder [Recovered/Resolved]
  - Confusional state [Recovered/Resolved]
  - Feeling abnormal [Unknown]
  - Implant site infection [Unknown]
  - Dizziness [Unknown]
  - Mood altered [Unknown]
  - Asthenia [Unknown]
  - Drug ineffective [Unknown]
  - Off label use [Unknown]
  - Device infusion issue [Unknown]

NARRATIVE: CASE EVENT DATE: 20200101
